FAERS Safety Report 6871919-7 (Version None)
Quarter: 2010Q3

REPORT INFORMATION
  Report Type: 
  Country: None (occurrence: None)
  Receive Date: 20100723
  Receipt Date: 20100716
  Transmission Date: 20110219
  Serious: Yes (Other)
  Sender: FDA-Public Use
  Company Number: US-JNJFOC-20100705756

PATIENT
  Sex: Female

DRUGS (13)
  1. TOPAMAX [Suspect]
     Indication: CONVULSION
     Dosage: AT NIGHT
     Route: 048
  2. PAXIL [Interacting]
     Indication: CRYING
     Route: 048
  3. REQUIP [Interacting]
     Indication: RESTLESS LEGS SYNDROME
     Route: 048
  4. NATURAL THYROID MEDICATION [Concomitant]
     Route: 065
  5. IBUPROFEN [Concomitant]
     Route: 065
  6. NORVASC [Concomitant]
     Route: 065
  7. AVALIDE [Concomitant]
     Route: 065
  8. SULFAMETHOXAZOLE [Concomitant]
     Route: 065
  9. NEXIUM [Concomitant]
     Route: 065
  10. ANTIBIOTICS [Concomitant]
     Route: 065
  11. NYSTATIN [Concomitant]
     Route: 065
  12. PREDNISONE [Concomitant]
     Route: 065
  13. PREVACID [Concomitant]
     Route: 065

REACTIONS (23)
  - BALANCE DISORDER [None]
  - BRONCHITIS [None]
  - CONFUSIONAL STATE [None]
  - DIARRHOEA [None]
  - DRUG INTERACTION [None]
  - EMOTIONAL DISORDER [None]
  - EUPHORIC MOOD [None]
  - EYE IRRITATION [None]
  - FALL [None]
  - FATIGUE [None]
  - FEAR [None]
  - FEELING DRUNK [None]
  - GAIT DISTURBANCE [None]
  - HALLUCINATION [None]
  - JOINT SPRAIN [None]
  - NERVOUSNESS [None]
  - ORAL DISORDER [None]
  - QUALITY OF LIFE DECREASED [None]
  - SINUSITIS [None]
  - THINKING ABNORMAL [None]
  - TOURETTE'S DISORDER [None]
  - TREMOR [None]
  - VOMITING [None]
